FAERS Safety Report 21087172 (Version 1)
Quarter: 2022Q3

REPORT INFORMATION
  Report Type: Spontaneous
  Country: US (occurrence: US)
  Receive Date: 20220715
  Receipt Date: 20220715
  Transmission Date: 20221027
  Serious: Yes (Hospitalization, Other)
  Sender: FDA-Public Use
  Company Number: US-CIPLA LTD.-2021US05886

PATIENT
  Sex: Male

DRUGS (1)
  1. PLAZOMICIN [Suspect]
     Active Substance: PLAZOMICIN
     Indication: Urinary tract infection
     Dosage: 864 MG, EVERY 48 HOURS
     Route: 065
     Dates: start: 20210727, end: 20210802

REACTIONS (2)
  - Renal failure [Recovering/Resolving]
  - Creatinine renal clearance decreased [Recovering/Resolving]

NARRATIVE: CASE EVENT DATE: 20210801
